FAERS Safety Report 7713839-1 (Version None)
Quarter: 2011Q3

REPORT INFORMATION
  Report Type: 
  Country: None (occurrence: None)
  Receive Date: 20110826
  Receipt Date: 20110823
  Transmission Date: 20111222
  Serious: Yes (Other)
  Sender: FDA-Public Use
  Company Number: BR-ABBOTT-11P-020-0705310-00

PATIENT
  Sex: Female
  Weight: 76 kg

DRUGS (8)
  1. METHOTREXATE [Concomitant]
     Indication: ANALGESIC THERAPY
  2. OS-CAL + D [Concomitant]
     Indication: OSTEOPOROSIS
     Route: 048
  3. METHOTREXATE [Concomitant]
     Indication: RHEUMATOID ARTHRITIS
     Route: 058
     Dates: start: 20101201
  4. METHOTREXATE [Concomitant]
  5. FOLIC ACID [Concomitant]
     Indication: PRODUCT USED FOR UNKNOWN INDICATION
     Route: 048
     Dates: start: 20100801
  6. HUMIRA [Suspect]
     Indication: RHEUMATOID ARTHRITIS
     Route: 058
     Dates: start: 20071201, end: 20110610
  7. ALENDRONATE SODIUM [Concomitant]
     Indication: OSTEOPOROSIS
     Route: 048
     Dates: start: 20070101
  8. CALCIUM CARBONATE [Concomitant]
     Indication: BONE DISORDER
     Route: 048

REACTIONS (2)
  - FOOT DEFORMITY [None]
  - URINE CALCIUM INCREASED [None]
